FAERS Safety Report 9270015 (Version 1)
Quarter: 2013Q2

REPORT INFORMATION
  Report Type: Spontaneous
  Country: US (occurrence: US)
  Receive Date: 20130502
  Receipt Date: 20130502
  Transmission Date: 20140414
  Serious: Yes (Other)
  Sender: FDA-Public Use
  Company Number: US-RB-053053-13

PATIENT
  Age: 28 Year
  Sex: Female

DRUGS (2)
  1. SUBOXONE UNSPECIFIED [Suspect]
     Indication: MIGRAINE
     Dosage: SUBOXONE UNSPECIFIED; DOSING DETAILS UNKNOWN
     Route: 065
     Dates: start: 20110317, end: 20120613
  2. SUBUTEX TABLETS [Suspect]
     Indication: MIGRAINE
     Route: 065
     Dates: start: 20120613

REACTIONS (6)
  - Arnold-Chiari malformation [Unknown]
  - Therapeutic response unexpected [Unknown]
  - Exposure during pregnancy [Recovered/Resolved]
  - Nausea [Unknown]
  - Vomiting [Unknown]
  - Pregnancy [None]
